FAERS Safety Report 18649807 (Version 1)
Quarter: 2020Q4

REPORT INFORMATION
  Report Type: Report from Study
  Country: None (occurrence: US)
  Receive Date: 20201222
  Receipt Date: 20201222
  Transmission Date: 20210114
  Serious: Yes (Hospitalization, Other)
  Sender: FDA-Public Use
  Company Number: US-ABBVIE-20K-163-3678002-00

PATIENT
  Sex: Male

DRUGS (2)
  1. IMBRUVICA [Suspect]
     Active Substance: IBRUTINIB
     Indication: CHRONIC LYMPHOCYTIC LEUKAEMIA
     Route: 048
     Dates: start: 201805
  2. IMBRUVICA [Suspect]
     Active Substance: IBRUTINIB
     Route: 048

REACTIONS (9)
  - Blister [Unknown]
  - Endodontic procedure [Unknown]
  - Cystitis noninfective [Unknown]
  - White blood cell count increased [Unknown]
  - Colitis [Unknown]
  - Tooth infection [Unknown]
  - Lymphocyte count increased [Unknown]
  - Gastric disorder [Unknown]
  - Liver function test increased [Unknown]
